FAERS Safety Report 4965855-0 (Version None)
Quarter: 2006Q2

REPORT INFORMATION
  Report Type: 
  Country: None (occurrence: None)
  Receive Date: 20060406
  Receipt Date: 20060406
  Transmission Date: 20061013
  Serious: Yes (Death)
  Sender: FDA-Public Use
  Company Number: None

PATIENT
  Age: 81 Year
  Sex: Male

DRUGS (7)
  1. CELLCEPT [Suspect]
     Indication: PANCREATIC CARCINOMA METASTATIC
     Dosage: 1.5 G   BID   PO
     Route: 048
     Dates: start: 20051214, end: 20060104
  2. PERCOCET [Concomitant]
  3. DILTIAZEM [Concomitant]
  4. DIGOXIN [Concomitant]
  5. PRILOSEC [Concomitant]
  6. MOTRIN [Concomitant]
  7. PROVIGIL [Concomitant]

REACTIONS (16)
  - ABDOMINAL PAIN [None]
  - ATRIAL FIBRILLATION [None]
  - CANDIDIASIS [None]
  - CONSTIPATION [None]
  - DECREASED APPETITE [None]
  - DRUG INTOLERANCE [None]
  - HICCUPS [None]
  - METASTASES TO LIVER [None]
  - MOBILITY DECREASED [None]
  - NAUSEA [None]
  - PANCREATIC CARCINOMA METASTATIC [None]
  - PULMONARY EMBOLISM [None]
  - TACHYCARDIA [None]
  - TACHYPNOEA [None]
  - TUMOUR MARKER INCREASED [None]
  - VOMITING [None]
